FAERS Safety Report 9206056 (Version 2)
Quarter: 2013Q2

REPORT INFORMATION
  Report Type: Spontaneous
  Country: CH (occurrence: CH)
  Receive Date: 20130403
  Receipt Date: 20130424
  Transmission Date: 20140414
  Serious: Yes (Other)
  Sender: FDA-Public Use
  Company Number: CH-JNJFOC-20130400800

PATIENT
  Age: 39 Year
  Sex: Female
  Weight: 59 kg

DRUGS (3)
  1. XARELTO [Suspect]
     Indication: EMBOLISM VENOUS
     Route: 048
     Dates: start: 20130118, end: 201302
  2. XARELTO [Suspect]
     Indication: EMBOLISM VENOUS
     Route: 048
     Dates: start: 201301
  3. SINTROM [Concomitant]
     Route: 065

REACTIONS (1)
  - Deep vein thrombosis [Recovered/Resolved]
